FAERS Safety Report 7834700-8 (Version None)
Quarter: 2011Q4

REPORT INFORMATION
  Report Type: 
  Country: None (occurrence: None)
  Receive Date: 20111024
  Receipt Date: 20111019
  Transmission Date: 20120403
  Serious: Yes (Other)
  Sender: FDA-Public Use
  Company Number: US-CEPHALON-US009755

PATIENT
  Sex: Female

DRUGS (5)
  1. ASCAL [Concomitant]
     Route: 048
  2. ACTIQ [Suspect]
     Indication: PAIN
     Route: 002
     Dates: start: 20011101, end: 20011106
  3. DURAGESIC-100 [Concomitant]
     Indication: PAIN
     Route: 062
     Dates: start: 19990501, end: 20011101
  4. DILAUDID [Concomitant]
     Indication: PAIN
     Route: 048
     Dates: end: 20011101
  5. PREDNISONE [Concomitant]
     Route: 048

REACTIONS (11)
  - DRUG WITHDRAWAL SYNDROME [None]
  - HYPERHIDROSIS [None]
  - NAUSEA [None]
  - FOETAL HYPOKINESIA [None]
  - PREMATURE LABOUR [None]
  - PAIN [None]
  - TREMOR [None]
  - MATERNAL EXPOSURE DURING PREGNANCY [None]
  - INTENTIONAL DRUG MISUSE [None]
  - MOOD SWINGS [None]
  - DIARRHOEA [None]
